FAERS Safety Report 22176036 (Version 3)
Quarter: 2023Q2

REPORT INFORMATION
  Report Type: Spontaneous
  Country: GB (occurrence: GB)
  Receive Date: 20230405
  Receipt Date: 20230501
  Transmission Date: 20230721
  Serious: Yes (Hospitalization, Other)
  Sender: FDA-Public Use
  Company Number: GB-MHRA-MED-202303221347262200-QVRGL

PATIENT

DRUGS (4)
  1. ATORVASTATIN [Suspect]
     Active Substance: ATORVASTATIN
     Indication: Disease risk factor
     Dosage: 20MG ONCE DAILY
     Route: 065
     Dates: start: 20221031, end: 20230303
  2. ATORVASTATIN [Suspect]
     Active Substance: ATORVASTATIN
     Indication: Adverse drug reaction
  3. CLARITHROMYCIN [Suspect]
     Active Substance: CLARITHROMYCIN
     Indication: Lower respiratory tract infection
     Dosage: 500MG TWICE A DAY
     Route: 065
     Dates: start: 20230227, end: 20230303
  4. CLARITHROMYCIN [Suspect]
     Active Substance: CLARITHROMYCIN
     Indication: Adverse drug reaction

REACTIONS (6)
  - Medication error [Unknown]
  - Psychotic disorder [Recovered/Resolved]
  - Confusional state [Unknown]
  - Disorientation [Unknown]
  - Labelled drug-drug interaction medication error [Unknown]
  - Insomnia [Unknown]

NARRATIVE: CASE EVENT DATE: 20230303
